FAERS Safety Report 7433146-4 (Version None)
Quarter: 2011Q2

REPORT INFORMATION
  Report Type: 
  Country: None (occurrence: None)
  Receive Date: 20110422
  Receipt Date: 20110414
  Transmission Date: 20111010
  Serious: Yes (Hospitalization)
  Sender: FDA-Public Use
  Company Number: BR-MEDIMMUNE-MEDI-0013111

PATIENT
  Sex: Female
  Weight: 7.24 kg

DRUGS (4)
  1. SYNAGIS [Suspect]
     Route: 030
     Dates: start: 20100517, end: 20100813
  2. RANITIDINE [Concomitant]
     Dosage: 7 ML OF 150MG
     Route: 048
     Dates: start: 20101001
  3. FERROUS SULFATE TAB [Concomitant]
     Route: 048
  4. DOMPERIDONE [Concomitant]
     Route: 048
     Dates: start: 20101001

REACTIONS (5)
  - PYREXIA [None]
  - PNEUMONIA [None]
  - LOWER RESPIRATORY TRACT INFECTION [None]
  - COUGH [None]
  - INFLUENZA [None]
